FAERS Safety Report 18309645 (Version 1)
Quarter: 2020Q3

REPORT INFORMATION
  Report Type: Report from Study
  Country: US (occurrence: US)
  Receive Date: 20200925
  Receipt Date: 20200925
  Transmission Date: 20201103
  Serious: No
  Sender: FDA-Public Use
  Company Number: NVSC2020US256903

PATIENT
  Sex: Female

DRUGS (1)
  1. ZOLGENSMA [Suspect]
     Active Substance: ONASEMNOGENE ABEPARVOVEC-XIOI
     Indication: SPINAL MUSCULAR ATROPHY
     Dosage: ONE SINGLE DOSE
     Route: 042
     Dates: start: 20200910, end: 20200910

REACTIONS (3)
  - Weight decreased [Unknown]
  - Vomiting [Unknown]
  - Platelet count decreased [Unknown]
